FAERS Safety Report 5116550-9 (Version None)
Quarter: 2006Q3

REPORT INFORMATION
  Report Type: 
  Country: None (occurrence: None)
  Receive Date: 20060928
  Receipt Date: 20060919
  Transmission Date: 20061208
  Serious: Yes (Death)
  Sender: FDA-Public Use
  Company Number: FR-JNJFOC-20051101970

PATIENT
  Age: 37 Year
  Sex: Female
  Weight: 64 kg

DRUGS (7)
  1. REMICADE [Suspect]
     Indication: RHEUMATOID ARTHRITIS
     Route: 042
  2. PLAQUENIL [Concomitant]
     Route: 065
  3. METHOTREXATE [Concomitant]
     Route: 065
  4. VOLTAREN [Concomitant]
     Route: 065
  5. SPECIAFOLDINE [Concomitant]
     Route: 065
  6. PREVISCAN [Concomitant]
     Route: 065
  7. CORTANCYL [Concomitant]
     Route: 065

REACTIONS (4)
  - CEREBROVASCULAR ACCIDENT [None]
  - DEATH [None]
  - NOSOCOMIAL INFECTION [None]
  - SEPTIC SHOCK [None]
